FAERS Safety Report 5827106-4 (Version None)
Quarter: 2008Q3

REPORT INFORMATION
  Report Type: 
  Country: None (occurrence: None)
  Receive Date: 20080729
  Receipt Date: 20080729
  Transmission Date: 20090109
  Serious: Yes (Life-Threatening, Hospitalization, Other)
  Sender: FDA-Public Use
  Company Number: None

PATIENT
  Sex: Male
  Weight: 82 kg

DRUGS (8)
  1. TAXOTERE [Suspect]
     Indication: PROSTATE CANCER
     Dosage: 111 MG(IV)
     Route: 042
     Dates: start: 20080529, end: 20080717
  2. RAD001 2.5MG [Suspect]
     Indication: PROSTATE CANCER
     Dosage: RAD 2.5MG MG ORAL-DAILY
     Route: 048
     Dates: start: 20080529, end: 20080723
  3. BEVACIZUMAB 15MG/KG [Suspect]
     Indication: PROSTATE CANCER
     Dosage: 1241MG (IV)
     Route: 042
     Dates: start: 20080529, end: 20080625
  4. SERTRALINE [Concomitant]
  5. CALCIUM [Concomitant]
  6. LORTAB [Concomitant]
  7. IBUPROFEN [Concomitant]
  8. PRILOSEC [Concomitant]

REACTIONS (4)
  - HAEMATOCRIT DECREASED [None]
  - LOBAR PNEUMONIA [None]
  - PROTEINURIA [None]
  - WHITE BLOOD CELL COUNT DECREASED [None]
